FAERS Safety Report 7323836-6 (Version None)
Quarter: 2011Q1

REPORT INFORMATION
  Report Type: 
  Country: None (occurrence: None)
  Receive Date: 20110301
  Receipt Date: 20110224
  Transmission Date: 20110831
  Serious: Yes (Death)
  Sender: FDA-Public Use
  Company Number: A0900530A

PATIENT
  Sex: Female

DRUGS (6)
  1. KALETRA [Suspect]
     Dosage: 6TAB PER DAY
     Route: 064
     Dates: start: 20101012
  2. RETROVIR [Suspect]
     Dosage: 2MGKH PER DAY
     Route: 064
     Dates: start: 20101106, end: 20101106
  3. COMBIVIR [Suspect]
     Indication: HIV INFECTION
     Dosage: 2TAB PER DAY
     Route: 064
     Dates: start: 20100801
  4. ZIDOVUDINE [Suspect]
     Indication: HIV INFECTION
     Route: 065
  5. KALETRA [Suspect]
     Indication: HIV INFECTION
     Dosage: 4TAB PER DAY
     Route: 064
     Dates: start: 20100801, end: 20101012
  6. RETROVIR [Suspect]
     Indication: HIV INFECTION
     Dosage: 1MGKH PER DAY
     Route: 064
     Dates: start: 20101106, end: 20101106

REACTIONS (4)
  - DEATH NEONATAL [None]
  - DRUG EXPOSURE DURING PREGNANCY [None]
  - SUDDEN INFANT DEATH SYNDROME [None]
  - ASPIRATION [None]
